FAERS Safety Report 5603360-9 (Version None)
Quarter: 2008Q1

REPORT INFORMATION
  Report Type: 
  Country: None (occurrence: None)
  Receive Date: 20080122
  Receipt Date: 20080114
  Transmission Date: 20080703
  Serious: Yes (Other)
  Sender: FDA-Public Use
  Company Number: GXKR2008AU00783

PATIENT
  Sex: Male

DRUGS (3)
  1. AMLODIPINE [Suspect]
     Dosage: ORAL
     Route: 048
  2. METFORMIN HCL [Concomitant]
  3. DIAMICRON (GLICLAZIDE) [Concomitant]

REACTIONS (1)
  - BLOOD GLUCOSE INCREASED [None]
